FAERS Safety Report 6768478-6 (Version None)
Quarter: 2010Q2

REPORT INFORMATION
  Report Type: 
  Country: None (occurrence: None)
  Receive Date: 20100614
  Receipt Date: 20100604
  Transmission Date: 20101027
  Serious: No
  Sender: FDA-Public Use
  Company Number: US-BAYER-201024851NA

PATIENT
  Age: 48 Year

DRUGS (7)
  1. MAGNEVIST [Suspect]
     Indication: NUCLEAR MAGNETIC RESONANCE IMAGING
     Dosage: TOTAL DAILY DOSE: 20 ML  UNIT DOSE: 20 ML
     Route: 042
     Dates: start: 20100604, end: 20100604
  2. METOPROLOL TARTRATE [Concomitant]
  3. LEXAPRO [Concomitant]
  4. CLONAZEPAM [Concomitant]
  5. VALIUM [Concomitant]
  6. BENADRYL [Concomitant]
  7. UNKNOWN MEDICATION [Concomitant]

REACTIONS (2)
  - PRURITUS [None]
  - URTICARIA [None]
